FAERS Safety Report 7917434-0 (Version None)
Quarter: 2011Q4

REPORT INFORMATION
  Report Type: 
  Country: None (occurrence: None)
  Receive Date: 20111116
  Receipt Date: 20111101
  Transmission Date: 20120403
  Serious: Yes (Hospitalization)
  Sender: FDA-Public Use
  Company Number: PHFR2011IE006340

PATIENT
  Sex: Male

DRUGS (1)
  1. CLOZARIL [Suspect]
     Indication: SCHIZOPHRENIA
     Dosage: 125 MG, UNK
     Route: 048
     Dates: start: 20100913

REACTIONS (2)
  - PARKINSON'S DISEASE [None]
  - PSYCHOTIC DISORDER [None]
